FAERS Safety Report 17247602 (Version 1)
Quarter: 2020Q1

REPORT INFORMATION
  Report Type: Spontaneous
  Country: US (occurrence: US)
  Receive Date: 20200107
  Receipt Date: 20200107
  Transmission Date: 20200409
  Serious: Yes (Death, Hospitalization)
  Sender: FDA-Public Use
  Company Number: None

PATIENT
  Age: 58 Year
  Sex: Female

DRUGS (1)
  1. KEYTRUDA [Suspect]
     Active Substance: PEMBROLIZUMAB
     Indication: UTERINE NEOPLASM
     Dosage: ?          OTHER FREQUENCY:EVERY THREE WEEKS;?
     Dates: start: 20190814

REACTIONS (5)
  - Hyperkalaemia [None]
  - Renal failure [None]
  - Hypoxia [None]
  - Autoimmune dermatitis [None]
  - Hypoglycaemia [None]

NARRATIVE: CASE EVENT DATE: 20190817
